FAERS Safety Report 4823710-0 (Version None)
Quarter: 2005Q4

REPORT INFORMATION
  Report Type: 
  Country: None (occurrence: None)
  Receive Date: 20051109
  Receipt Date: 20051012
  Transmission Date: 20060501
  Serious: Yes (Hospitalization)
  Sender: FDA-Public Use
  Company Number: US-ROCHE-421048

PATIENT
  Age: 24 Year
  Sex: Female
  Weight: 72.6 kg

DRUGS (5)
  1. PEG-INTERFERON ALFA 2A (RO 25-8310) [Suspect]
     Route: 058
     Dates: start: 20050820
  2. RIBAVIRIN [Suspect]
     Route: 048
     Dates: start: 20050820
  3. ORTHO EVRA [Concomitant]
     Indication: CONTRACEPTION
     Route: 062
     Dates: start: 20050401
  4. PRENATAL VITAMINS [Concomitant]
     Route: 048
     Dates: start: 20050822
  5. LORCET-HD [Concomitant]
     Indication: PELVIC PAIN
     Route: 048
     Dates: start: 20050822

REACTIONS (5)
  - DEHYDRATION [None]
  - LEUKOPENIA [None]
  - NAUSEA [None]
  - VAGINAL HAEMORRHAGE [None]
  - VOMITING [None]
